FAERS Safety Report 8155899-2 (Version None)
Quarter: 2012Q1

REPORT INFORMATION
  Report Type: 
  Country: None (occurrence: None)
  Receive Date: 20120221
  Receipt Date: 20120221
  Transmission Date: 20120608
  Serious: Yes (Death)
  Sender: FDA-Public Use
  Company Number: None

PATIENT
  Age: 95 Year
  Sex: Male

DRUGS (1)
  1. PRADAXA [Suspect]
     Dosage: 150 MG CAP TWICE/DAY
     Dates: start: 20111026, end: 20111216

REACTIONS (3)
  - HAEMORRHAGE [None]
  - DYSPNOEA [None]
  - HAEMATOCHEZIA [None]
